FAERS Safety Report 9182404 (Version 1)
Quarter: 2012Q4

REPORT INFORMATION
  Report Type: 
  Country: US (occurrence: US)
  Receive Date: 20121030
  Receipt Date: 20121030
  Transmission Date: 20130627
  Serious: No
  Sender: FDA-Public Use
  Company Number: US-GLAXOSMITHKLINE-A0955783A

PATIENT
  Age: 20 Year
  Sex: Male

DRUGS (4)
  1. IMITREX [Suspect]
     Indication: MIGRAINE
     Route: 045
     Dates: start: 1997, end: 1998
  2. IMITREX [Suspect]
     Indication: MIGRAINE
     Dosage: 6MG As required
     Route: 058
     Dates: start: 1992
  3. CAFERGOT [Concomitant]
  4. NAPROXEN [Concomitant]
     Dates: start: 2010

REACTIONS (7)
  - Nausea [Recovered/Resolved]
  - Vomiting [Unknown]
  - Dysgeusia [Unknown]
  - Dizziness [Unknown]
  - Headache [Unknown]
  - Therapeutic response unexpected [Unknown]
  - Drug ineffective [Unknown]
